FAERS Safety Report 9829991 (Version 1)
Quarter: 2014Q1

REPORT INFORMATION
  Report Type: Spontaneous
  Country: GB (occurrence: GB)
  Receive Date: 20140120
  Receipt Date: 20140120
  Transmission Date: 20141002
  Serious: Yes (Disabling)
  Sender: FDA-Public Use
  Company Number: PHHY2014GB003469

PATIENT
  Age: 65 Year
  Sex: Female
  Weight: 64.41 kg

DRUGS (1)
  1. DOXYCYCLINE [Suspect]
     Indication: EYE INFECTION
     Dosage: 100 MG, QD
     Route: 048
     Dates: start: 20080805, end: 20080807

REACTIONS (2)
  - Lactose intolerance [Not Recovered/Not Resolved]
  - Abdominal pain upper [Recovered/Resolved with Sequelae]
